FAERS Safety Report 9375136 (Version 3)
Quarter: 2013Q3

REPORT INFORMATION
  Report Type: Spontaneous
  Country: US (occurrence: US)
  Receive Date: 20130628
  Receipt Date: 20130806
  Transmission Date: 20140515
  Serious: Yes (Hospitalization, Disabling, Other)
  Sender: FDA-Public Use
  Company Number: US-MERCK-1306USA010959

PATIENT
  Age: 59 Year
  Sex: Male

DRUGS (10)
  1. SAPHRIS [Suspect]
     Indication: BIPOLAR DISORDER
     Dosage: 10 MG, HS
     Route: 060
     Dates: start: 20130611, end: 20130617
  2. ASPIRIN [Concomitant]
  3. ATIVAN [Concomitant]
  4. PRAVASTATIN SODIUM [Concomitant]
  5. AMOXICILLIN [Concomitant]
  6. PRINIVIL [Concomitant]
     Route: 048
  7. GLIPIZIDE [Concomitant]
  8. ETANERCEPT [Concomitant]
  9. LAMICTAL [Concomitant]
     Indication: BIPOLAR DISORDER
     Dosage: 200 MG, BID
     Route: 048
     Dates: start: 200904
  10. KLONOPIN [Concomitant]
     Indication: BIPOLAR DISORDER
     Dosage: 1-2 MG HS
     Route: 048
     Dates: start: 200904

REACTIONS (9)
  - Agitation [Recovered/Resolved]
  - Epilepsy [Recovering/Resolving]
  - Insomnia [Recovered/Resolved]
  - Mental status changes [Recovering/Resolving]
  - Convulsion [Recovered/Resolved]
  - Middle insomnia [Recovered/Resolved]
  - Hallucination, olfactory [Recovered/Resolved]
  - Inappropriate schedule of drug administration [Unknown]
  - Feeling abnormal [Recovered/Resolved]
